FAERS Safety Report 12815326 (Version 2)
Quarter: 2016Q4

REPORT INFORMATION
  Report Type: Report from Study
  Country: CA (occurrence: CA)
  Receive Date: 20161005
  Receipt Date: 20161129
  Transmission Date: 20170207
  Serious: Yes (Other)
  Sender: FDA-Public Use
  Company Number: CA-JNJFOC-20160931133

PATIENT
  Age: 33 Year
  Sex: Female
  Weight: 58 kg

DRUGS (4)
  1. REMICADE [Suspect]
     Active Substance: INFLIXIMAB
     Indication: COLITIS ULCERATIVE
     Route: 042
     Dates: start: 200904
  2. REMICADE [Suspect]
     Active Substance: INFLIXIMAB
     Indication: COLITIS ULCERATIVE
     Route: 042
     Dates: start: 20161123
  3. CITALOPRAM [Concomitant]
     Active Substance: CITALOPRAM HYDROBROMIDE
     Route: 048
  4. REMICADE [Suspect]
     Active Substance: INFLIXIMAB
     Indication: COLITIS ULCERATIVE
     Route: 042
     Dates: start: 20160928

REACTIONS (5)
  - Infusion related reaction [Recovered/Resolved]
  - Paraesthesia [Recovered/Resolved]
  - Inappropriate schedule of drug administration [Unknown]
  - Off label use [Unknown]
  - Lupus-like syndrome [Not Recovered/Not Resolved]

NARRATIVE: CASE EVENT DATE: 2016
